FAERS Safety Report 16977799 (Version 3)
Quarter: 2019Q4

REPORT INFORMATION
  Report Type: Spontaneous
  Country: FR (occurrence: FR)
  Receive Date: 20191031
  Receipt Date: 20191127
  Transmission Date: 20200122
  Serious: Yes (Hospitalization)
  Sender: FDA-Public Use
  Company Number: FR-TEVA-2019-FR-1129420

PATIENT
  Age: 2 Year
  Sex: Male
  Weight: 12.1 kg

DRUGS (2)
  1. VANCOMYCINE [Suspect]
     Active Substance: VANCOMYCIN
     Indication: PERITONITIS
     Dosage: UNSPECIFIED
     Route: 042
     Dates: start: 20190812, end: 20190823
  2. CEFEPIME [Suspect]
     Active Substance: CEFEPIME HYDROCHLORIDE
     Indication: PERITONITIS
     Dosage: UNSPECIFIED
     Route: 042
     Dates: start: 20190812, end: 20190823

REACTIONS (1)
  - Drug reaction with eosinophilia and systemic symptoms [Recovered/Resolved]

NARRATIVE: CASE EVENT DATE: 20190825
